FAERS Safety Report 4283480-4 (Version None)
Quarter: 2004Q1

REPORT INFORMATION
  Report Type: 
  Country: None (occurrence: None)
  Receive Date: 20040115
  Receipt Date: 20031107
  Transmission Date: 20041129
  Serious: Yes (Death)
  Sender: FDA-Public Use
  Company Number: US-JNJFOC-20031101354

PATIENT
  Age: 77 Year
  Sex: Male

DRUGS (1)
  1. DOXIL [Suspect]
     Indication: SMALL CELL LUNG CANCER STAGE UNSPECIFIED
     Dosage: 60 MG/M2, INTRAVENOUS
     Route: 042
     Dates: start: 20030715, end: 20030829

REACTIONS (1)
  - MALIGNANT NEOPLASM PROGRESSION [None]
